FAERS Safety Report 13953259 (Version 1)
Quarter: 2017Q3

REPORT INFORMATION
  Report Type: Spontaneous
  Country: US (occurrence: None)
  Receive Date: 20170908
  Receipt Date: 20170908
  Transmission Date: 20171128
  Serious: Yes (Hospitalization)
  Sender: FDA-Public Use
  Company Number: None

PATIENT
  Age: 78 Year
  Sex: Female

DRUGS (1)
  1. STELARA [Suspect]
     Active Substance: USTEKINUMAB
     Indication: CROHN^S DISEASE
     Dosage: 90 MG EVERY 8 WEEKS SUBCUTANEOUSLY
     Route: 058
     Dates: start: 20170719

REACTIONS (4)
  - Abdominal pain [None]
  - Liver function test decreased [None]
  - Renal impairment [None]
  - Dyspnoea [None]

NARRATIVE: CASE EVENT DATE: 20170901
